FAERS Safety Report 20847727 (Version 2)
Quarter: 2022Q2

REPORT INFORMATION
  Report Type: Spontaneous
  Country: US (occurrence: US)
  Receive Date: 20220519
  Receipt Date: 20220620
  Transmission Date: 20220720
  Serious: No
  Sender: FDA-Public Use
  Company Number: US-AIMMUNE THERAPEUTICS, INC.-2022AIMT00382

PATIENT

DRUGS (5)
  1. PALFORZIA [Suspect]
     Active Substance: PEANUT
     Indication: Food allergy
     Dosage: 6 MG, 1X/DAY
     Route: 048
     Dates: start: 20220423, end: 20220430
  2. PALFORZIA [Suspect]
     Active Substance: PEANUT
     Dosage: 6 MG, ONCE, LAST DOSE PRIOR TO EVENTS, DOSE INTERRUPTED
     Route: 048
     Dates: start: 20220430, end: 20220430
  3. PALFORZIA [Suspect]
     Active Substance: PEANUT
     Dosage: IDE RESTARTED (0.5 - 6MG), 1X/DAY
     Route: 048
     Dates: start: 20220602, end: 20220602
  4. PALFORZIA [Suspect]
     Active Substance: PEANUT
     Dosage: 3 MG, 1XDAY, UP-DOSED
     Route: 048
     Dates: start: 20220604
  5. AUVI-Q [Concomitant]
     Active Substance: EPINEPHRINE
     Indication: Product used for unknown indication
     Dosage: UNK, 3MG/3ML

REACTIONS (4)
  - Poor quality sleep [Recovered/Resolved]
  - Gastroenteritis [Recovered/Resolved]
  - Abdominal discomfort [Recovered/Resolved]
  - Vomiting [Recovered/Resolved]

NARRATIVE: CASE EVENT DATE: 20220430
